FAERS Safety Report 7539042-6 (Version None)
Quarter: 2011Q2

REPORT INFORMATION
  Report Type: 
  Country: None (occurrence: None)
  Receive Date: 20110610
  Receipt Date: 20110606
  Transmission Date: 20111010
  Serious: Yes (Death)
  Sender: FDA-Public Use
  Company Number: PHHY2011US49850

PATIENT
  Weight: 99.773 kg

DRUGS (1)
  1. EXJADE [Suspect]
     Indication: THALASSAEMIA
     Dosage: 3000 MG, QD
     Route: 048
     Dates: start: 20060302

REACTIONS (1)
  - DEATH [None]
